FAERS Safety Report 10726323 (Version 2)
Quarter: 2015Q2

REPORT INFORMATION
  Report Type: Spontaneous
  Country: US (occurrence: US)
  Receive Date: 20150121
  Receipt Date: 20150515
  Transmission Date: 20150821
  Serious: No
  Sender: FDA-Public Use
  Company Number: US-PFIZER INC-2014263613

PATIENT
  Age: 71 Year
  Sex: Female
  Weight: 86 kg

DRUGS (16)
  1. LOMOTIL [Suspect]
     Active Substance: ATROPINE SULFATE\DIPHENOXYLATE HYDROCHLORIDE
     Indication: DIARRHOEA
     Dosage: AS NEEDED
     Dates: start: 20000421
  2. CARAFATE [Suspect]
     Active Substance: SUCRALFATE
     Indication: DIARRHOEA
     Dosage: 1 G, DAILY (AS NEEDED)
  3. HYDROCHLOROTHIAZIDE. [Suspect]
     Active Substance: HYDROCHLOROTHIAZIDE
     Dosage: 25 MG, DAILY
     Dates: start: 20000421
  4. CYMBALTA [Suspect]
     Active Substance: DULOXETINE HYDROCHLORIDE
     Indication: SURGERY
     Dosage: 60 MG, DAILY
     Dates: start: 2000
  5. SUDAFED [Suspect]
     Active Substance: PSEUDOEPHEDRINE HYDROCHLORIDE
     Dosage: UNK
  6. LIBRAX [Suspect]
     Active Substance: CHLORDIAZEPOXIDE HYDROCHLORIDE\CLIDINIUM BROMIDE
     Indication: DIARRHOEA
     Dosage: UNK, 3X/DAY
  7. ALEVE [Suspect]
     Active Substance: NAPROXEN SODIUM
     Dosage: UNK
  8. COUMADINE [Suspect]
     Active Substance: WARFARIN SODIUM
     Indication: PULMONARY THROMBOSIS
     Dosage: 5 MG, UNK
     Dates: start: 2000
  9. LIPITOR [Suspect]
     Active Substance: ATORVASTATIN CALCIUM
     Dosage: 10 MG, 1X/DAY
     Dates: start: 20140705
  10. ULTRAM [Suspect]
     Active Substance: TRAMADOL HYDROCHLORIDE
     Dosage: UNK
  11. ALLOPURINOL. [Suspect]
     Active Substance: ALLOPURINOL
     Indication: NEPHROLITHIASIS
     Dosage: 300 MG, UNK
     Dates: start: 2006
  12. FLEXERIL [Suspect]
     Active Substance: CYCLOBENZAPRINE HYDROCHLORIDE
     Indication: SURGERY
     Dosage: 10 MG, DAILY (AS NEEDED)
  13. LYRICA [Concomitant]
     Active Substance: PREGABALIN
     Indication: NERVE INJURY
     Dosage: 150 MG, DAILY
  14. METOPROLOL TARTRATE. [Suspect]
     Active Substance: METOPROLOL TARTRATE
     Indication: BLOOD PRESSURE ABNORMAL
     Dosage: 25 MG, 2X/DAY
     Route: 048
     Dates: start: 20000421
  15. ALLOPURINOL. [Suspect]
     Active Substance: ALLOPURINOL
     Indication: GOUT
  16. PANTOPRAZOLE [Concomitant]
     Active Substance: PANTOPRAZOLE SODIUM
     Dosage: 40 MG, 2X/DAY
     Dates: start: 20140220

REACTIONS (1)
  - Drug hypersensitivity [Unknown]
